FAERS Safety Report 24055018 (Version 1)
Quarter: 2024Q3

REPORT INFORMATION
  Report Type: Spontaneous
  Country: ZA (occurrence: None)
  Receive Date: 20240705
  Receipt Date: 20240705
  Transmission Date: 20241016
  Serious: Yes (Hospitalization)
  Sender: ASTRAZENECA
  Company Number: 2024A150146

PATIENT
  Age: 78 Year
  Sex: Male

DRUGS (10)
  1. DAPAGLIFLOZIN [Suspect]
     Active Substance: DAPAGLIFLOZIN
     Indication: Diabetes mellitus
     Route: 048
  2. ROSUVASTATIN [Concomitant]
     Active Substance: ROSUVASTATIN
     Indication: Blood cholesterol
  3. NOVORAPID FLEXPEN PENSET [Concomitant]
     Indication: Diabetes mellitus
  4. AMIODARONE [Concomitant]
     Active Substance: AMIODARONE
     Indication: Arrhythmia
  5. RIVAROXABAN [Concomitant]
     Active Substance: RIVAROXABAN
     Indication: Anticoagulant therapy
  6. FUROSEMIDE [Concomitant]
     Active Substance: FUROSEMIDE
     Indication: Hypertension
  7. TAMIFLU [Concomitant]
     Active Substance: OSELTAMIVIR PHOSPHATE
  8. ZITHROLIDE [Concomitant]
  9. BETADEXAMINE [Concomitant]
  10. VIMOVO [Concomitant]
     Active Substance: ESOMEPRAZOLE MAGNESIUM\NAPROXEN
     Indication: Pain
     Dosage: 500/20 MG

REACTIONS (3)
  - Cardiac failure [Unknown]
  - Dyspnoea [Unknown]
  - Blood iron decreased [Unknown]
